FAERS Safety Report 4557539-8 (Version None)
Quarter: 2005Q1

REPORT INFORMATION
  Report Type: 
  Country: None (occurrence: None)
  Receive Date: 20050103
  Receipt Date: 20041008
  Transmission Date: 20050727
  Serious: Yes (Other)
  Sender: FDA-Public Use
  Company Number: 2004UW18372

PATIENT
  Age: 77 Year
  Sex: Female
  Weight: 93.8946 kg

DRUGS (7)
  1. CRESTOR [Suspect]
     Dosage: 10 MG DAILY PO
     Route: 048
     Dates: start: 20040216, end: 20040824
  2. SYNTHROID [Concomitant]
  3. LASIX [Concomitant]
  4. POTASSIUM CHLORIDE [Concomitant]
  5. AVALIDE [Concomitant]
  6. REGLAN [Concomitant]
  7. PREVACID [Concomitant]

REACTIONS (3)
  - ASTHENIA [None]
  - FATIGUE [None]
  - HEPATIC FUNCTION ABNORMAL [None]
